FAERS Safety Report 11787759 (Version 1)
Quarter: 2015Q4

REPORT INFORMATION
  Report Type: Spontaneous
  Country: US (occurrence: US)
  Receive Date: 20151130
  Receipt Date: 20151130
  Transmission Date: 20160305
  Serious: No
  Sender: FDA-Public Use
  Company Number: US-BAYER-2015-471963

PATIENT
  Age: 73 Year
  Sex: Female
  Weight: 57.14 kg

DRUGS (11)
  1. ZEGERID OTC CAPSULES [Suspect]
     Active Substance: OMEPRAZOLE\SODIUM BICARBONATE
     Indication: COLITIS ULCERATIVE
     Dosage: 1 DF, BID
     Route: 048
     Dates: start: 2011, end: 2011
  2. ZEGERID OTC CAPSULES [Suspect]
     Active Substance: OMEPRAZOLE\SODIUM BICARBONATE
     Indication: COLITIS ULCERATIVE
     Dosage: 1 DF, QD
     Route: 048
     Dates: start: 2011
  3. REMICADE [Concomitant]
     Active Substance: INFLIXIMAB
  4. CALCIUM [Concomitant]
     Active Substance: CALCIUM
  5. OMEGA 3 [Concomitant]
     Active Substance: OMEGA-3 FATTY ACIDS
  6. VITAMIN D [Concomitant]
     Active Substance: CHOLECALCIFEROL
     Dosage: 50000 UNITS A WEEK
  7. NORVASC [Concomitant]
     Active Substance: AMLODIPINE BESYLATE
  8. FISH OIL [Concomitant]
     Active Substance: FISH OIL
  9. LEVOTHYROXINE. [Concomitant]
     Active Substance: LEVOTHYROXINE
  10. FORTEO [Concomitant]
     Active Substance: TERIPARATIDE
  11. ONE-A-DAY ADULT VITACRAVES WITH ENERGY SUPPORT [Concomitant]
     Indication: VITAMIN SUPPLEMENTATION

REACTIONS (3)
  - Product use issue [None]
  - Product use issue [None]
  - Product use issue [None]

NARRATIVE: CASE EVENT DATE: 2011
